FAERS Safety Report 17356451 (Version 1)
Quarter: 2020Q1

REPORT INFORMATION
  Report Type: Spontaneous
  Country: CA (occurrence: CA)
  Receive Date: 20200131
  Receipt Date: 20200131
  Transmission Date: 20200409
  Serious: Yes (Hospitalization)
  Sender: FDA-Public Use
  Company Number: CA-TEVA-2020-CA-1177229

PATIENT
  Age: 52 Year
  Sex: Female

DRUGS (17)
  1. BUDESONIDE. [Suspect]
     Active Substance: BUDESONIDE
     Dosage: 1 DOSAGE FORMS DAILY;
     Route: 065
  2. CRINONE [Suspect]
     Active Substance: PROGESTERONE
     Indication: MENOPAUSE
     Route: 065
  3. CLARITIN [Concomitant]
     Active Substance: LORATADINE
     Route: 065
  4. GLICLAZIDE [Concomitant]
     Active Substance: GLICLAZIDE
  5. PRASTERONE [Suspect]
     Active Substance: PRASTERONE
     Route: 067
  6. PRASTERONE [Suspect]
     Active Substance: PRASTERONE
     Route: 067
  7. BUDESONIDE. [Suspect]
     Active Substance: BUDESONIDE
     Route: 065
  8. ESTRADIOL. [Suspect]
     Active Substance: ESTRADIOL
     Route: 065
  9. LORATADINE. [Suspect]
     Active Substance: LORATADINE
     Indication: PRODUCT USED FOR UNKNOWN INDICATION
     Route: 048
  10. LORATADINE. [Suspect]
     Active Substance: LORATADINE
     Route: 048
  11. PRASTERONE [Suspect]
     Active Substance: PRASTERONE
     Indication: PRODUCT USED FOR UNKNOWN INDICATION
     Route: 067
  12. LORATADINE. [Suspect]
     Active Substance: LORATADINE
     Route: 048
  13. PROGESTERONE. [Suspect]
     Active Substance: PROGESTERONE
     Indication: MENOPAUSE
     Route: 065
  14. ESTRADIOL. [Suspect]
     Active Substance: ESTRADIOL
     Indication: PRODUCT USED FOR UNKNOWN INDICATION
     Route: 065
  15. CLARITIN [Concomitant]
     Active Substance: LORATADINE
     Route: 065
  16. BUDESONIDE. [Suspect]
     Active Substance: BUDESONIDE
     Indication: PRODUCT USED FOR UNKNOWN INDICATION
     Route: 065
  17. BUDESONIDE. [Suspect]
     Active Substance: BUDESONIDE
     Route: 065

REACTIONS (10)
  - Head discomfort [Unknown]
  - Butterfly rash [Unknown]
  - Tinnitus [Unknown]
  - Periorbital oedema [Unknown]
  - Photosensitivity reaction [Unknown]
  - Cellulitis [Unknown]
  - Feeling hot [Unknown]
  - Rash [Unknown]
  - Product use in unapproved indication [Unknown]
  - Swelling face [Unknown]
